FAERS Safety Report 18850984 (Version 2)
Quarter: 2021Q2

REPORT INFORMATION
  Report Type: Report from Study
  Country: TW (occurrence: TW)
  Receive Date: 20210204
  Receipt Date: 20210525
  Transmission Date: 20210717
  Serious: Yes (Other)
  Sender: FDA-Public Use
  Company Number: TW-INCYTE CORPORATION-2019IN007964

PATIENT

DRUGS (160)
  1. CHLORPHENIRAMINE [CHLORPHENAMINE] [Concomitant]
     Active Substance: CHLORPHENIRAMINE
     Dosage: 5 MG (AMPOULE)
     Route: 042
     Dates: start: 20180627, end: 20180627
  2. CHLORPHENIRAMINE [CHLORPHENAMINE] [Concomitant]
     Active Substance: CHLORPHENIRAMINE
     Dosage: 5 MG (AMPOULE)
     Route: 042
     Dates: start: 20180807, end: 20180807
  3. CHLORPHENIRAMINE [CHLORPHENAMINE] [Concomitant]
     Active Substance: CHLORPHENIRAMINE
     Dosage: 5 MG (AMPOULE)
     Route: 042
     Dates: start: 20181030, end: 20181030
  4. CHLORPHENIRAMINE [CHLORPHENAMINE] [Concomitant]
     Active Substance: CHLORPHENIRAMINE
     Dosage: 5 MG (AMPOULE)
     Route: 042
     Dates: start: 20181228, end: 20181228
  5. CHLORPHENIRAMINE [CHLORPHENAMINE] [Concomitant]
     Active Substance: CHLORPHENIRAMINE
     Dosage: 5 MG (AMPOULE)
     Route: 042
     Dates: start: 20190409, end: 20190409
  6. CHLORPHENIRAMINE [CHLORPHENAMINE] [Concomitant]
     Active Substance: CHLORPHENIRAMINE
     Dosage: 5 MG (AMPOULE)
     Route: 042
     Dates: start: 20190521, end: 20190521
  7. CHLORPHENIRAMINE [CHLORPHENAMINE] [Concomitant]
     Active Substance: CHLORPHENIRAMINE
     Dosage: 5 MG (AMPOULE)
     Route: 042
     Dates: start: 20191008, end: 20191008
  8. DEFERASIROX. [Concomitant]
     Active Substance: DEFERASIROX
     Dosage: 750 MG
     Route: 048
     Dates: start: 20190716
  9. GLIPIZIDE;METFORMIN [Concomitant]
     Active Substance: GLIPIZIDE\METFORMIN HYDROCHLORIDE
     Indication: DIABETES MELLITUS
     Dosage: 5 MG
     Route: 048
     Dates: start: 20180904
  10. INSULIN DETEMIR [Concomitant]
     Active Substance: INSULIN DETEMIR
     Dosage: 12 U
     Route: 058
     Dates: start: 20191009
  11. LINAGLIPTIN [Concomitant]
     Active Substance: LINAGLIPTIN
     Dosage: 5 MG
     Route: 048
     Dates: start: 20181225, end: 20190116
  12. SENNOSIDE A+B [Concomitant]
     Active Substance: SENNOSIDES A AND B
     Dosage: 24 MG
     Route: 048
     Dates: start: 20181218, end: 20181218
  13. SILYMARIN [Concomitant]
     Active Substance: DIETARY SUPPLEMENT\HERBALS\MILK THISTLE
     Indication: PRODUCT USED FOR UNKNOWN INDICATION
     Dosage: 70 MG
     Route: 048
     Dates: start: 20180530, end: 20180806
  14. SITAGLIPTIN METFORMIN [Concomitant]
     Active Substance: METFORMIN HYDROCHLORIDE\SITAGLIPTIN PHOSPHATE
     Dosage: UNK
     Route: 048
     Dates: start: 20190910, end: 20190918
  15. ZOLPIDEM TARTRATE. [Concomitant]
     Active Substance: ZOLPIDEM TARTRATE
     Indication: INSOMNIA
     Dosage: 6.25 MG
     Route: 048
     Dates: start: 20191009, end: 20191202
  16. AMBROXOL [Concomitant]
     Active Substance: AMBROXOL
     Indication: PYREXIA
     Dosage: 75 MG
     Route: 048
     Dates: start: 20181226, end: 20190104
  17. CIPROFLOXACIN;HYDROCORTISONE [Concomitant]
     Dosage: 500 MG (TABLET)
     Route: 048
     Dates: start: 20190121, end: 20190127
  18. CODEINE [Concomitant]
     Active Substance: CODEINE
     Indication: PYREXIA
     Dosage: 30 MG
     Route: 048
     Dates: start: 20181225, end: 20190115
  19. DEXAMETHASONE. [Concomitant]
     Active Substance: DEXAMETHASONE
     Indication: PYREXIA
     Dosage: 5 MG (VIAL)
     Route: 042
     Dates: start: 20191203, end: 20191203
  20. DIMETHICONE. [Concomitant]
     Active Substance: DIMETHICONE
     Indication: URINARY TRACT INFECTION
     Dosage: 40 MG
     Route: 048
     Dates: start: 20190829, end: 20190902
  21. IPRATROPIUM BROMIDE AND SALBUTAMOL SULFATE [Concomitant]
     Active Substance: ALBUTEROL SULFATE\IPRATROPIUM BROMIDE
     Indication: PYREXIA
     Dosage: UNK (0.5/3 MG, VIAL)
     Route: 055
     Dates: start: 20181218, end: 20181218
  22. POTASSIUM GLUCONATE [Concomitant]
     Active Substance: POTASSIUM GLUCONATE
     Indication: VOMITING
     Dosage: 1785 MG
     Route: 048
     Dates: start: 20181224, end: 20181231
  23. TAZOCIN [Concomitant]
     Active Substance: PIPERACILLIN SODIUM\TAZOBACTAM SODIUM
     Dosage: 2.25 G
     Route: 042
     Dates: start: 20190115, end: 20190116
  24. ALPRAZOLAM. [Concomitant]
     Active Substance: ALPRAZOLAM
     Dosage: 0.5 MG
     Route: 048
     Dates: start: 20190916, end: 20191210
  25. CHLORPHENIRAMINE [CHLORPHENAMINE] [Concomitant]
     Active Substance: CHLORPHENIRAMINE
     Dosage: 5 MG (AMPOULE)
     Route: 042
     Dates: start: 20190820, end: 20190820
  26. DENOSUMAB [Concomitant]
     Active Substance: DENOSUMAB
     Dosage: 60 MG (VIAL)
     Route: 058
     Dates: start: 20190909, end: 20190909
  27. ESTAZOLAM. [Concomitant]
     Active Substance: ESTAZOLAM
     Indication: INSOMNIA
     Dosage: 1 MG
     Route: 048
     Dates: start: 20181222, end: 20181223
  28. INSULIN DETEMIR [Concomitant]
     Active Substance: INSULIN DETEMIR
     Dosage: 18 U
     Route: 058
     Dates: start: 20190822, end: 20190822
  29. INSULIN DETEMIR [Concomitant]
     Active Substance: INSULIN DETEMIR
     Dosage: 14 U
     Route: 058
     Dates: start: 20190823, end: 20190824
  30. INSULIN [Concomitant]
     Active Substance: INSULIN NOS
     Dosage: 2 U (VIAL)
     Route: 058
     Dates: start: 20191204, end: 20191204
  31. INSULIN [Concomitant]
     Active Substance: INSULIN NOS
     Dosage: 2 U (VIAL)
     Route: 058
     Dates: start: 20191207, end: 20191207
  32. LOPERAMIDE [Concomitant]
     Active Substance: LOPERAMIDE
     Indication: DIARRHOEA
     Dosage: 2 MG
     Route: 048
     Dates: start: 20191206, end: 20191206
  33. PROCHLORPERAZINE. [Concomitant]
     Active Substance: PROCHLORPERAZINE
     Indication: VOMITING
     Dosage: 5 MG
     Route: 048
     Dates: start: 20191204, end: 20191209
  34. SENNOSIDE A+B [Concomitant]
     Active Substance: SENNOSIDES A AND B
     Indication: CONSTIPATION
     Dosage: 12 MG
     Route: 048
     Dates: start: 20190827, end: 20190901
  35. UNASYN [SULTAMICILLIN TOSILATE] [Concomitant]
     Active Substance: SULTAMICILLIN TOSYLATE
     Indication: PYREXIA
     Dosage: 1.5 G
     Route: 042
     Dates: start: 20190102, end: 20190107
  36. CHLORPHENIRAMINE [CHLORPHENAMINE] [Concomitant]
     Active Substance: CHLORPHENIRAMINE
     Indication: ALLERGY PROPHYLAXIS
     Dosage: 5 MG (AMPOULE)
     Route: 042
     Dates: start: 20180307, end: 20180307
  37. CHLORPHENIRAMINE [CHLORPHENAMINE] [Concomitant]
     Active Substance: CHLORPHENIRAMINE
     Dosage: 5 MG (AMPOULE)
     Route: 042
     Dates: start: 20180207, end: 20180207
  38. CHLORPHENIRAMINE [CHLORPHENAMINE] [Concomitant]
     Active Substance: CHLORPHENIRAMINE
     Dosage: 5 MG (AMPOULE)
     Route: 042
     Dates: start: 20180502, end: 20180502
  39. CHLORPHENIRAMINE [CHLORPHENAMINE] [Concomitant]
     Active Substance: CHLORPHENIRAMINE
     Dosage: 5 MG (AMPOULE)
     Route: 042
     Dates: start: 20190618, end: 20190618
  40. CHLORPHENIRAMINE [CHLORPHENAMINE] [Concomitant]
     Active Substance: CHLORPHENIRAMINE
     Dosage: 5 MG (AMPOULE)
     Route: 042
     Dates: start: 20191203, end: 20191203
  41. CALCIUM ACETATE. [Concomitant]
     Active Substance: CALCIUM ACETATE
     Indication: DIARRHOEA
     Dosage: 667 MG
     Route: 048
     Dates: start: 20191208, end: 20191211
  42. DEFERASIROX. [Concomitant]
     Active Substance: DEFERASIROX
     Dosage: 625 MG
     Route: 048
     Dates: start: 20181127, end: 20190114
  43. DEFERASIROX. [Concomitant]
     Active Substance: DEFERASIROX
     Dosage: 625 MG
     Route: 048
     Dates: start: 20190618, end: 20190715
  44. EURODIN [ESTAZOLAM] [Concomitant]
     Active Substance: ESTAZOLAM
     Dosage: 4 MG
     Route: 048
     Dates: start: 20180926, end: 20181024
  45. INSULIN DETEMIR [Concomitant]
     Active Substance: INSULIN DETEMIR
     Indication: DIABETES MELLITUS
     Dosage: 16 U (16 U/ CAR)
     Route: 058
     Dates: start: 20180206, end: 20181007
  46. INSULIN DETEMIR [Concomitant]
     Active Substance: INSULIN DETEMIR
     Dosage: UNK (DOSE 17)
     Route: 058
     Dates: start: 20181225, end: 20190102
  47. PROLIA [Concomitant]
     Active Substance: DENOSUMAB
     Indication: OSTEOPOROSIS
     Dosage: 60 MG (VIAL)
     Route: 058
     Dates: start: 20180212, end: 20180212
  48. SAROTEN [Concomitant]
     Active Substance: AMITRIPTYLINE
     Dosage: 50 MG
     Route: 048
     Dates: start: 20180704, end: 20180801
  49. SAROTEN [Concomitant]
     Active Substance: AMITRIPTYLINE
     Dosage: 50 MG
     Route: 048
     Dates: start: 20180926, end: 20181024
  50. SITAGLIPTIN [Concomitant]
     Active Substance: SITAGLIPTIN
     Indication: DIABETES MELLITUS
     Dosage: 100 MG
     Route: 048
     Dates: start: 20190820, end: 20190902
  51. SITAGLIPTIN METFORMIN [Concomitant]
     Active Substance: METFORMIN HYDROCHLORIDE\SITAGLIPTIN PHOSPHATE
     Indication: DIABETES MELLITUS
     Dosage: UNK
     Route: 048
     Dates: start: 20190813, end: 20190818
  52. SITAGLIPTIN METFORMIN [Concomitant]
     Active Substance: METFORMIN HYDROCHLORIDE\SITAGLIPTIN PHOSPHATE
     Dosage: UNK
     Route: 048
     Dates: start: 20190820, end: 20190820
  53. URSODEOXYCHOLIC AC [Concomitant]
     Indication: CHOLELITHIASIS
     Dosage: 100 MG
     Route: 048
     Dates: start: 20190117, end: 20190121
  54. ZOPICLONE [Concomitant]
     Active Substance: ZOPICLONE
     Dosage: 7.5 MG
     Route: 048
     Dates: start: 20190920, end: 20191001
  55. CEFAZOLIN [Concomitant]
     Active Substance: CEFAZOLIN
     Indication: PYREXIA
     Dosage: UNK (1 GM/ VIAL)
     Route: 042
     Dates: start: 20181224, end: 20181226
  56. CEFAZOLIN [Concomitant]
     Active Substance: CEFAZOLIN
     Indication: OSTEOPOROSIS
     Dosage: 1 G (1G/VIAL)
     Route: 042
     Dates: start: 20190818, end: 20190819
  57. LORAZEPAM;TEMAZEPAM [Concomitant]
     Indication: PYREXIA
     Dosage: 1 MG
     Route: 048
     Dates: start: 20181221, end: 20181221
  58. OXETHAZAINE [Concomitant]
     Active Substance: OXETHAZAINE
     Indication: URINARY TRACT INFECTION
     Dosage: UNK (OXETHAZAINE/ POLYMIGEL)
     Route: 048
     Dates: start: 20190917, end: 20191001
  59. TAPIMYCIN [Concomitant]
     Active Substance: PIPERACILLIN SODIUM\TAZOBACTAM SODIUM
     Indication: PYREXIA
     Dosage: 4.5 G (VIAL)
     Route: 042
     Dates: start: 20181220, end: 20181224
  60. VANCOMYCIN [Concomitant]
     Active Substance: VANCOMYCIN
     Indication: PYREXIA
     Dosage: 125 MG  (VIAL)
     Route: 048
     Dates: start: 20191205, end: 20191211
  61. CHLORPHENIRAMINE [CHLORPHENAMINE] [Concomitant]
     Active Substance: CHLORPHENIRAMINE
     Dosage: 5 MG (AMPOULE)
     Route: 042
     Dates: start: 20180403, end: 20180403
  62. CHLORPHENIRAMINE [CHLORPHENAMINE] [Concomitant]
     Active Substance: CHLORPHENIRAMINE
     Dosage: 5 MG (AMPOULE)
     Route: 042
     Dates: start: 20181002, end: 20181002
  63. CHLORPHENIRAMINE [CHLORPHENAMINE] [Concomitant]
     Active Substance: CHLORPHENIRAMINE
     Dosage: 5 MG (AMPOULE)
     Route: 042
     Dates: start: 20190121, end: 20190121
  64. CHLORPHENIRAMINE [CHLORPHENAMINE] [Concomitant]
     Active Substance: CHLORPHENIRAMINE
     Dosage: 5 MG (AMPOULE)
     Route: 042
     Dates: start: 20190813, end: 20190813
  65. CHLORPHENIRAMINE [CHLORPHENAMINE] [Concomitant]
     Active Substance: CHLORPHENIRAMINE
     Dosage: 5 MG (AMPOULE)
     Route: 042
     Dates: start: 20190917, end: 20190917
  66. CHLORPHENIRAMINE [CHLORPHENAMINE] [Concomitant]
     Active Substance: CHLORPHENIRAMINE
     Dosage: 5 MG (AMPOULE)
     Route: 042
     Dates: start: 20191105, end: 20191105
  67. DEFERASIROX. [Concomitant]
     Active Substance: DEFERASIROX
     Dosage: 125 MG
     Route: 048
     Dates: start: 20190118, end: 20190121
  68. FEBUXOSTAT. [Concomitant]
     Active Substance: FEBUXOSTAT
     Indication: GOUT
     Dosage: 40 MG
     Route: 048
     Dates: start: 20181218, end: 20190104
  69. INSULIN DETEMIR [Concomitant]
     Active Substance: INSULIN DETEMIR
     Dosage: 22 U
     Route: 058
     Dates: start: 20190618, end: 20190821
  70. INSULIN [Concomitant]
     Active Substance: INSULIN NOS
     Indication: DIABETES MELLITUS
     Dosage: 10 U
     Route: 042
     Dates: start: 20181218, end: 20181218
  71. LINAGLIPTIN [Concomitant]
     Active Substance: LINAGLIPTIN
     Indication: DIABETES MELLITUS
     Dosage: 5 MG
     Route: 048
     Dates: start: 20180110, end: 20180529
  72. LOPERAMIDE [Concomitant]
     Active Substance: LOPERAMIDE
     Dosage: 4 MG (TABLET)
     Route: 048
     Dates: start: 20161212, end: 20180402
  73. SAROTEN [Concomitant]
     Active Substance: AMITRIPTYLINE
     Indication: INSOMNIA
     Dosage: 50 MG
     Route: 048
     Dates: start: 20180412, end: 20180510
  74. SENNOSIDE A+B [Concomitant]
     Active Substance: SENNOSIDES A AND B
     Dosage: 12 MG
     Route: 048
     Dates: start: 20190910, end: 20191202
  75. LACTAMAX [Concomitant]
     Indication: PYREXIA
     Dosage: 500 MG
     Route: 048
     Dates: start: 20181218, end: 20181218
  76. ACETYLCYSTEINE;PARACETAMOL [Concomitant]
     Indication: PYREXIA
     Dosage: 600 MG
     Route: 048
     Dates: start: 20181226, end: 20190104
  77. CEFEPIME;LEVOFLOXACIN [Concomitant]
     Indication: PYREXIA
     Dosage: 2000 MG (VIAL)
     Route: 042
     Dates: start: 20191203, end: 20191209
  78. ERTAPENEM. [Concomitant]
     Active Substance: ERTAPENEM SODIUM
     Indication: PYREXIA
     Dosage: UNK (1 GM/ VIAL)
     Route: 042
     Dates: start: 20190822, end: 20190902
  79. JAKAVI [Suspect]
     Active Substance: RUXOLITINIB
     Indication: MYELOFIBROSIS
     Dosage: 20 MG
     Route: 048
     Dates: start: 20180207
  80. JAKAVI [Suspect]
     Active Substance: RUXOLITINIB
     Dosage: 20 MG, QD
     Route: 048
     Dates: end: 20180626
  81. ALPRAZOLAM. [Concomitant]
     Active Substance: ALPRAZOLAM
     Indication: INSOMNIA
     Dosage: 0.5 MG
     Route: 048
     Dates: start: 20190820, end: 20190911
  82. CHLORPHENIRAMINE [CHLORPHENAMINE] [Concomitant]
     Active Substance: CHLORPHENIRAMINE
     Dosage: 5 MG (AMPOULE)
     Route: 042
     Dates: start: 20180710, end: 20180710
  83. CHLORPHENIRAMINE [CHLORPHENAMINE] [Concomitant]
     Active Substance: CHLORPHENIRAMINE
     Dosage: 5 MG (AMPOULE)
     Route: 042
     Dates: start: 20181220, end: 20181220
  84. CHLORPHENIRAMINE [CHLORPHENAMINE] [Concomitant]
     Active Substance: CHLORPHENIRAMINE
     Dosage: 5 MG (AMPOULE)
     Route: 042
     Dates: start: 20190104, end: 20190104
  85. DEFERASIROX. [Concomitant]
     Active Substance: DEFERASIROX
     Dosage: 875 MG
     Route: 048
     Dates: start: 20190212, end: 20190311
  86. DEXTASONE [Concomitant]
     Indication: VOMITING
     Dosage: UNK (5/244 MG)
     Route: 048
     Dates: start: 20191206, end: 20191211
  87. GENTAMICIN. [Concomitant]
     Active Substance: GENTAMICIN
     Indication: PYREXIA
     Dosage: 5 MG/ TAB
     Route: 061
     Dates: start: 20190102, end: 20190103
  88. INSULIN DETEMIR [Concomitant]
     Active Substance: INSULIN DETEMIR
     Dosage: 12 U
     Route: 058
     Dates: start: 20190910, end: 20190916
  89. PROLIA [Concomitant]
     Active Substance: DENOSUMAB
     Dosage: 60 MG (VIAL)
     Route: 058
     Dates: start: 20180815, end: 20180815
  90. SAROTEN [Concomitant]
     Active Substance: AMITRIPTYLINE
     Dosage: 50 MG
     Route: 048
     Dates: start: 20181219, end: 20190115
  91. SENNOSIDE A+B [Concomitant]
     Active Substance: SENNOSIDES A AND B
     Dosage: 24 MG
     Route: 048
     Dates: start: 20190910, end: 20190911
  92. ACETAMINOPHEN. [Concomitant]
     Active Substance: ACETAMINOPHEN
     Dosage: 500 MG
     Route: 048
     Dates: start: 20190916, end: 20190916
  93. ACETYLCYSTEINE;PARACETAMOL [Concomitant]
     Dosage: 600 MG
     Route: 048
     Dates: start: 20190115, end: 20190128
  94. POTASSIUM GLUCONATE [Concomitant]
     Active Substance: POTASSIUM GLUCONATE
     Indication: PYREXIA
     Dosage: 1190 MG
     Route: 048
     Dates: start: 20191206, end: 20191210
  95. TAZOCIN [Concomitant]
     Active Substance: PIPERACILLIN SODIUM\TAZOBACTAM SODIUM
     Indication: PYREXIA
     Dosage: 4.5 G (VIAL)
     Route: 042
     Dates: start: 20181218, end: 20181218
  96. JAKAVI [Suspect]
     Active Substance: RUXOLITINIB
     Dosage: 10 MG, QD
     Route: 048
     Dates: start: 20180807, end: 20181001
  97. CHLORPHENIRAMINE [CHLORPHENAMINE] [Concomitant]
     Active Substance: CHLORPHENIRAMINE
     Dosage: 5 MG (AMPOULE)
     Route: 042
     Dates: start: 20181127, end: 20181127
  98. CHLORPHENIRAMINE [CHLORPHENAMINE] [Concomitant]
     Active Substance: CHLORPHENIRAMINE
     Dosage: 5 MG (AMPOULE)
     Route: 042
     Dates: start: 20190115, end: 20190115
  99. CHLORPHENIRAMINE [CHLORPHENAMINE] [Concomitant]
     Active Substance: CHLORPHENIRAMINE
     Dosage: 5 MG (AMPOULE)
     Route: 042
     Dates: start: 20191210, end: 20191210
  100. CHLORPHENIRAMINE [CHLORPHENAMINE] [Concomitant]
     Active Substance: CHLORPHENIRAMINE
     Dosage: UNK
     Route: 065
  101. DAILYCARE ACTIBEST [Concomitant]
     Indication: CHRONIC KIDNEY DISEASE
     Dosage: UNK
     Route: 048
     Dates: start: 20170306, end: 20191029
  102. DEFERASIROX. [Concomitant]
     Active Substance: DEFERASIROX
     Indication: MYELOFIBROSIS
     Dosage: 875 MG
     Route: 048
     Dates: start: 20180110, end: 20180501
  103. DENOSUMAB [Concomitant]
     Active Substance: DENOSUMAB
     Indication: OSTEOPOROSIS
     Dosage: 60 MG (VIAL)
     Route: 058
     Dates: start: 20190227, end: 20190227
  104. INSULIN [Concomitant]
     Active Substance: INSULIN NOS
     Dosage: 4 U
     Route: 042
     Dates: start: 20181230, end: 20190104
  105. ZOLPIDEM [Concomitant]
     Active Substance: ZOLPIDEM TARTRATE
     Indication: INSOMNIA
     Dosage: 10 MG
     Route: 048
     Dates: start: 20181222, end: 20181223
  106. ACETAMINOPHEN. [Concomitant]
     Active Substance: ACETAMINOPHEN
     Indication: PYREXIA
     Dosage: 500 MG
     Route: 048
     Dates: start: 20181226, end: 20181227
  107. ACETAMINOPHEN. [Concomitant]
     Active Substance: ACETAMINOPHEN
     Indication: OSTEOPOROSIS
     Dosage: 500 MG
     Route: 048
     Dates: start: 20191007, end: 20191007
  108. ACETAMINOPHEN. [Concomitant]
     Active Substance: ACETAMINOPHEN
     Dosage: 500 MG
     Route: 048
     Dates: start: 20191226, end: 20191227
  109. CEFTIBUTEN. [Concomitant]
     Active Substance: CEFTIBUTEN
     Indication: PYREXIA
     Dosage: 200 MG
     Route: 048
     Dates: start: 20191008, end: 20191014
  110. EPINEPHRINE;LIDOCAINE HYDROCHLORIDE [Concomitant]
     Active Substance: EPINEPHRINE\LIDOCAINE HYDROCHLORIDE
     Indication: PYREXIA
     Dosage: 1 MG (AMP)
     Route: 055
     Dates: start: 20181226, end: 20181226
  111. ERTAPENEM. [Concomitant]
     Active Substance: ERTAPENEM SODIUM
     Indication: URINARY TRACT INFECTION
     Dosage: UNK
     Route: 042
     Dates: start: 20190917, end: 20190921
  112. JAKAVI [Suspect]
     Active Substance: RUXOLITINIB
     Dosage: 20 MG, QD
     Route: 048
     Dates: start: 20180710, end: 20180806
  113. CHLORPHENIRAMINE [CHLORPHENAMINE] [Concomitant]
     Active Substance: CHLORPHENIRAMINE
     Dosage: 5 MG (AMPOULE)
     Route: 042
     Dates: start: 20180530, end: 20180530
  114. CHLORPHENIRAMINE [CHLORPHENAMINE] [Concomitant]
     Active Substance: CHLORPHENIRAMINE
     Dosage: 5 MG (AMPOULE)
     Route: 042
     Dates: start: 20180904, end: 20180904
  115. CHLORPHENIRAMINE [CHLORPHENAMINE] [Concomitant]
     Active Substance: CHLORPHENIRAMINE
     Dosage: 5 MG (AMPOULE)
     Route: 042
     Dates: start: 20190212, end: 20190212
  116. CHLORPHENIRAMINE [CHLORPHENAMINE] [Concomitant]
     Active Substance: CHLORPHENIRAMINE
     Dosage: 5 MG (AMPOULE)
     Route: 042
     Dates: start: 20190716, end: 20190716
  117. CHLORPHENIRAMINE [CHLORPHENAMINE] [Concomitant]
     Active Substance: CHLORPHENIRAMINE
     Dosage: 5 MG (AMPOULE)
     Route: 042
     Dates: start: 20190918, end: 20190918
  118. CIMETIDINE [Concomitant]
     Active Substance: CIMETIDINE
     Indication: VOMITING
     Dosage: 200 MG (AMP)
     Route: 042
     Dates: start: 20191203
  119. DIOSMECTITE [Concomitant]
     Active Substance: MONTMORILLONITE
     Indication: DIARRHOEA
     Dosage: UNK (3 G/ PKG)
     Route: 048
     Dates: start: 20191204, end: 20191206
  120. FEBUXOSTAT. [Concomitant]
     Active Substance: FEBUXOSTAT
     Dosage: 40 MG
     Route: 048
     Dates: start: 20181219, end: 20190115
  121. HYDROCORTISONE. [Concomitant]
     Active Substance: HYDROCORTISONE
     Indication: ALLERGY PROPHYLAXIS
     Dosage: 100 MG (PER VIAL)
     Route: 042
     Dates: start: 20191008, end: 20191008
  122. INSULIN DETEMIR [Concomitant]
     Active Substance: INSULIN DETEMIR
     Dosage: UNK (DOSE 20 MG)
     Route: 058
     Dates: start: 20190103, end: 20190103
  123. INSULIN DETEMIR [Concomitant]
     Active Substance: INSULIN DETEMIR
     Dosage: UNK (DOSE 18)
     Route: 058
     Dates: start: 20190104, end: 20190617
  124. INSULIN DETEMIR [Concomitant]
     Active Substance: INSULIN DETEMIR
     Dosage: 12 U
     Route: 058
     Dates: start: 20190825, end: 20190901
  125. PIOGLITAZONE. [Concomitant]
     Active Substance: PIOGLITAZONE
     Indication: DIABETES MELLITUS
     Dosage: 30 MG
     Route: 048
     Dates: start: 20180110, end: 20180529
  126. LACTATED RINGERS SOLUTION [Concomitant]
     Active Substance: CALCIUM CHLORIDE\POTASSIUM CHLORIDE\SODIUM CHLORIDE\SODIUM LACTATE
     Indication: PYREXIA
     Dosage: 1000 ML
     Route: 042
     Dates: start: 20181218, end: 20181218
  127. ACETAMINOPHEN. [Concomitant]
     Active Substance: ACETAMINOPHEN
     Dosage: 500 MG
     Route: 048
     Dates: start: 20190818, end: 20190820
  128. ACETAMINOPHEN. [Concomitant]
     Active Substance: ACETAMINOPHEN
     Dosage: 500 MG
     Route: 065
     Dates: start: 20190921, end: 20190924
  129. ACETAMINOPHEN. [Concomitant]
     Active Substance: ACETAMINOPHEN
     Dosage: 500 MG
     Route: 048
     Dates: start: 20191226, end: 20191227
  130. CIPROFLOXACIN;HYDROCORTISONE [Concomitant]
     Indication: PYREXIA
     Dosage: 400 MG (BOT)
     Route: 042
     Dates: start: 20190819, end: 20190822
  131. FLOMOXEF [Concomitant]
     Active Substance: FLOMOXEF
     Indication: PYREXIA
     Dosage: UNK (1 G VIAL)
     Route: 042
     Dates: start: 20190117, end: 20190121
  132. ERTAPENEM. [Concomitant]
     Active Substance: ERTAPENEM SODIUM
     Dosage: 1 GM/ VIAL
     Route: 042
     Dates: start: 20191007, end: 20191008
  133. CALCIUM CARBONATE. [Concomitant]
     Active Substance: CALCIUM CARBONATE
     Indication: URINARY TRACT INFECTION
     Dosage: 500 MG
     Route: 048
     Dates: start: 20190920, end: 20191001
  134. TAZOCIN [Concomitant]
     Active Substance: PIPERACILLIN SODIUM\TAZOBACTAM SODIUM
     Dosage: 2.25 UNK
     Route: 042
     Dates: start: 20181226
  135. JAKAVI [Suspect]
     Active Substance: RUXOLITINIB
     Dosage: 10 MG, QD
     Route: 048
     Dates: start: 20180627, end: 20180719
  136. JAKAVI [Suspect]
     Active Substance: RUXOLITINIB
     Dosage: 20 MG, QD
     Route: 048
     Dates: start: 20181002, end: 20190408
  137. JAKAVI [Suspect]
     Active Substance: RUXOLITINIB
     Dosage: 20 MG, QD
     Route: 048
     Dates: start: 20190423
  138. CHLORPHENIRAMINE [CHLORPHENAMINE] [Concomitant]
     Active Substance: CHLORPHENIRAMINE
     Dosage: 5 MG (AMPOULE)
     Route: 042
     Dates: start: 20180110, end: 20180110
  139. CHLORPHENIRAMINE [CHLORPHENAMINE] [Concomitant]
     Active Substance: CHLORPHENIRAMINE
     Dosage: 5 MG (AMPOULE)
     Route: 042
     Dates: start: 20190312, end: 20190312
  140. CHLORPHENIRAMINE [CHLORPHENAMINE] [Concomitant]
     Active Substance: CHLORPHENIRAMINE
     Dosage: 5 MG (AMPOULE)
     Route: 042
     Dates: start: 20190423, end: 20190423
  141. EURODIN [ESTAZOLAM] [Concomitant]
     Active Substance: ESTAZOLAM
     Indication: INSOMNIA
     Dosage: 4 MG
     Route: 048
     Dates: start: 20180412, end: 20180510
  142. EURODIN [ESTAZOLAM] [Concomitant]
     Active Substance: ESTAZOLAM
     Dosage: 4 MG
     Route: 048
     Dates: start: 20180704, end: 20180801
  143. EURODIN [ESTAZOLAM] [Concomitant]
     Active Substance: ESTAZOLAM
     Dosage: 4 MG
     Route: 048
     Dates: start: 20181219, end: 20190115
  144. EXJADE [Concomitant]
     Active Substance: DEFERASIROX
     Indication: MYELOFIBROSIS
     Dosage: 1000 MG
     Route: 048
     Dates: start: 20180502, end: 20180626
  145. GLIPIZIDE;METFORMIN [Concomitant]
     Active Substance: GLIPIZIDE\METFORMIN HYDROCHLORIDE
     Dosage: 5 MG
     Route: 048
     Dates: start: 20191009, end: 20191202
  146. INSULIN DETEMIR [Concomitant]
     Active Substance: INSULIN DETEMIR
     Dosage: UNK (DOSE 20)
     Route: 058
     Dates: start: 20181002, end: 20181224
  147. INSULIN [Concomitant]
     Active Substance: INSULIN NOS
     Dosage: 8 U
     Route: 042
     Dates: start: 20181218, end: 20181229
  148. KINZOLAM [Concomitant]
     Active Substance: ESTAZOLAM
     Indication: INSOMNIA
     Dosage: 4 MG
     Route: 048
     Dates: start: 20190306, end: 20190403
  149. PINSAUN [Concomitant]
     Indication: INSOMNIA
     Dosage: 50 MG
     Route: 048
     Dates: start: 20190306, end: 20190403
  150. SITAGLIPTIN METFORMIN [Concomitant]
     Active Substance: METFORMIN HYDROCHLORIDE\SITAGLIPTIN PHOSPHATE
     Dosage: UNK
     Route: 048
     Dates: start: 20191009
  151. THROUGH [Concomitant]
     Indication: CONSTIPATION
     Dosage: 24 MG
     Route: 048
     Dates: start: 20181127, end: 20181211
  152. ZOPICLONE [Concomitant]
     Active Substance: ZOPICLONE
     Indication: INSOMNIA
     Dosage: 7.5 MG
     Route: 048
     Dates: start: 20181218, end: 20181220
  153. ACETAMINOPHEN. [Concomitant]
     Active Substance: ACETAMINOPHEN
     Indication: URINARY TRACT INFECTION
     Dosage: 500 MG
     Route: 048
     Dates: start: 20191203, end: 20191203
  154. ACETAMINOPHEN. [Concomitant]
     Active Substance: ACETAMINOPHEN
     Dosage: 500 MG
     Route: 048
     Dates: start: 20190115, end: 20190115
  155. BENZONATATE. [Concomitant]
     Active Substance: BENZONATATE
     Indication: PYREXIA
     Dosage: 100 MG
     Route: 048
     Dates: start: 20190115, end: 20190117
  156. CEFOXITIN [Concomitant]
     Active Substance: CEFOXITIN SODIUM
     Indication: PYREXIA
     Dosage: 1 G/VIAL
     Route: 042
     Dates: start: 20190116, end: 20190117
  157. METRONIDAZOLE. [Concomitant]
     Active Substance: METRONIDAZOLE
     Indication: PYREXIA
     Dosage: 500 MG
     Route: 048
     Dates: start: 20181220, end: 20181224
  158. TAZOCIN [Concomitant]
     Active Substance: PIPERACILLIN SODIUM\TAZOBACTAM SODIUM
     Dosage: 2.25 G (VIAL)
     Route: 042
     Dates: start: 20181218, end: 20181219
  159. POLYMIGEL [Concomitant]
     Indication: VOMITING
     Dosage: 5 MG
     Route: 048
     Dates: start: 20191206, end: 20191211
  160. POLYMIGEL [Concomitant]
     Dosage: 244 MG
     Route: 048
     Dates: start: 20191206, end: 20191211

REACTIONS (4)
  - Cytopenia [Recovered/Resolved]
  - Oedema [Recovered/Resolved]
  - Thrombocytopenia [Recovered/Resolved]
  - Oedema [Recovered/Resolved]

NARRATIVE: CASE EVENT DATE: 20180320
